FAERS Safety Report 10592664 (Version 1)
Quarter: 2014Q4

REPORT INFORMATION
  Report Type: Spontaneous
  Country: US (occurrence: None)
  Receive Date: 20141117
  Receipt Date: 20141117
  Transmission Date: 20150529
  Serious: Yes (Other)
  Sender: FDA-Public Use
  Company Number: IMP_08146_2014

PATIENT
  Age: 52 Year
  Sex: Male

DRUGS (9)
  1. SPIRONOLACTONE. [Concomitant]
     Active Substance: SPIRONOLACTONE
  2. FUROSEMIDE. [Concomitant]
     Active Substance: FUROSEMIDE
  3. AMIODARONE [Concomitant]
     Active Substance: AMIODARONE
  4. WARFARIN [Concomitant]
     Active Substance: WARFARIN
  5. CARVEDILOL. [Concomitant]
     Active Substance: CARVEDILOL
  6. HYDRALAZINE [Concomitant]
     Active Substance: HYDRALAZINE HYDROCHLORIDE
  7. LISINOPRIL. [Concomitant]
     Active Substance: LISINOPRIL
  8. DIGOXIN. [Suspect]
     Active Substance: DIGOXIN
     Indication: PRODUCT USED FOR UNKNOWN INDICATION
     Dosage: DF
  9. ISOSORBIDE MONONITRATE. [Concomitant]
     Active Substance: ISOSORBIDE MONONITRATE

REACTIONS (12)
  - Toxicity to various agents [None]
  - Hyperkalaemia [None]
  - Nausea [None]
  - Abdominal discomfort [None]
  - Blood pressure decreased [None]
  - Bradycardia [None]
  - Hypotension [None]
  - Heart rate decreased [None]
  - Acute kidney injury [None]
  - Vomiting [None]
  - Renal failure [None]
  - Hallucination, auditory [None]
